FAERS Safety Report 7247557-3 (Version None)
Quarter: 2011Q1

REPORT INFORMATION
  Report Type: 
  Country: None (occurrence: None)
  Receive Date: 20110127
  Receipt Date: 20110124
  Transmission Date: 20110831
  Serious: Yes (Hospitalization)
  Sender: FDA-Public Use
  Company Number: IT-ROCHE-755222

PATIENT
  Sex: Male

DRUGS (2)
  1. FLUOROURACIL [Concomitant]
     Route: 042
     Dates: start: 20090205, end: 20090206
  2. AVASTIN [Suspect]
     Route: 042
     Dates: start: 20090205, end: 20090205

REACTIONS (1)
  - LARGE INTESTINAL OBSTRUCTION [None]
